FAERS Safety Report 12349912 (Version 1)
Quarter: 2016Q2

REPORT INFORMATION
  Report Type: Report from Study
  Country: US (occurrence: US)
  Receive Date: 20160510
  Receipt Date: 20160510
  Transmission Date: 20160815
  Serious: Yes (Other)
  Sender: FDA-Public Use
  Company Number: US-AMGEN-USASL2016057578

PATIENT
  Age: 83 Year

DRUGS (1)
  1. REPATHA [Suspect]
     Active Substance: EVOLOCUMAB
     Indication: PRODUCT USED FOR UNKNOWN INDICATION
     Dosage: UNK
     Route: 065
     Dates: start: 20160422

REACTIONS (5)
  - Blood pressure decreased [Unknown]
  - Nasal congestion [Unknown]
  - Respiratory distress [Unknown]
  - Throat irritation [Unknown]
  - Dysphonia [Unknown]

NARRATIVE: CASE EVENT DATE: 20160429
